FAERS Safety Report 19913349 (Version 12)
Quarter: 2022Q4

REPORT INFORMATION
  Report Type: Report from Study
  Country: US (occurrence: US)
  Receive Date: 20211004
  Receipt Date: 20221216
  Transmission Date: 20230113
  Serious: Yes (Other)
  Sender: FDA-Public Use
  Company Number: US-NOVARTISPH-NVSC2021US223769

PATIENT
  Age: 42 Year
  Sex: Female
  Weight: 125.65 kg

DRUGS (8)
  1. PROMACTA [Suspect]
     Active Substance: ELTROMBOPAG OLAMINE
     Indication: Immune thrombocytopenia
     Dosage: UNK
     Route: 048
     Dates: start: 20210924
  2. PROMACTA [Suspect]
     Active Substance: ELTROMBOPAG OLAMINE
     Dosage: 50 MG, Q2H
     Route: 048
     Dates: start: 202110
  3. PROMACTA [Suspect]
     Active Substance: ELTROMBOPAG OLAMINE
     Dosage: 50 MG, QD
     Route: 048
     Dates: start: 20211012
  4. CARVEDILOL [Concomitant]
     Active Substance: CARVEDILOL
     Indication: Product used for unknown indication
     Dosage: UNK
     Route: 065
  5. LISINOPRIL [Concomitant]
     Active Substance: LISINOPRIL
     Indication: Product used for unknown indication
     Dosage: UNK
     Route: 065
  6. VASCEPA [Concomitant]
     Active Substance: ICOSAPENT ETHYL
     Indication: Product used for unknown indication
     Dosage: UNK
     Route: 065
  7. VICTOZA [Concomitant]
     Active Substance: LIRAGLUTIDE
     Indication: Product used for unknown indication
     Dosage: UNK
     Route: 065
  8. CRESTOR [Concomitant]
     Active Substance: ROSUVASTATIN CALCIUM
     Indication: Product used for unknown indication
     Dosage: 20 MG, QD
     Route: 065

REACTIONS (21)
  - Diabetes mellitus [Unknown]
  - Hepatitis A [Unknown]
  - Onychoclasis [Unknown]
  - Nail growth abnormal [Unknown]
  - Iron deficiency anaemia [Unknown]
  - Weight increased [Unknown]
  - Dyspepsia [Unknown]
  - Hypertension [Unknown]
  - SARS-CoV-2 test positive [Unknown]
  - Pyrexia [Unknown]
  - Headache [Unknown]
  - Product availability issue [Unknown]
  - Decreased appetite [Unknown]
  - Product dose omission issue [Unknown]
  - Urinary tract infection [Unknown]
  - Tooth infection [Unknown]
  - Arthralgia [Unknown]
  - Platelet count decreased [Unknown]
  - Back pain [Unknown]
  - Nausea [Unknown]
  - Alopecia [Unknown]

NARRATIVE: CASE EVENT DATE: 20220508
